FAERS Safety Report 14603967 (Version 1)
Quarter: 2018Q1

REPORT INFORMATION
  Report Type: Spontaneous
  Country: FR (occurrence: FR)
  Receive Date: 20180306
  Receipt Date: 20180306
  Transmission Date: 20180509
  Serious: Yes (Hospitalization)
  Sender: FDA-Public Use
  Company Number: FR-CONCORDIA PHARMACEUTICALS INC.-E2B_00010454

PATIENT
  Sex: Female

DRUGS (1)
  1. DIGOXIN. [Suspect]
     Active Substance: DIGOXIN
     Indication: TACHYCARDIA FOETAL
     Dosage: INITIAL DOSE UNKNOWN. LATER, RECEIVED MAINTENANCE DOSE AT 0.75 MG/DAY
     Route: 050

REACTIONS (4)
  - Acute kidney injury [Unknown]
  - Maternal exposure during pregnancy [Unknown]
  - Overdose [Unknown]
  - Toxicity to various agents [Unknown]
